FAERS Safety Report 9173289 (Version 1)
Quarter: 2013Q1

REPORT INFORMATION
  Report Type: Spontaneous
  Country: US (occurrence: None)
  Receive Date: 20130319
  Receipt Date: 20130319
  Transmission Date: 20140127
  Serious: Yes (Other)
  Sender: FDA-Public Use
  Company Number: None

PATIENT
  Age: 56 Year
  Sex: Male
  Weight: 88 kg

DRUGS (1)
  1. ERBITUX [Suspect]
     Indication: RECTAL CANCER
     Route: 041
     Dates: start: 20130305, end: 20130305

REACTIONS (1)
  - Cardio-respiratory arrest [None]
